FAERS Safety Report 14175432 (Version 2)
Quarter: 2017Q4

REPORT INFORMATION
  Report Type: Spontaneous
  Country: CZ (occurrence: CZ)
  Receive Date: 20171109
  Receipt Date: 20171120
  Transmission Date: 20180321
  Serious: Yes (Disabling, Congenital Anomaly, Other)
  Sender: FDA-Public Use
  Company Number: CZ-BAYER-2017-210265

PATIENT
  Age: 63 Year
  Sex: Male
  Weight: 78 kg

DRUGS (5)
  1. NEXAVAR [Suspect]
     Active Substance: SORAFENIB
     Indication: RENAL CANCER
     Dosage: 200 MG, BID
  2. ENOXAPARIN SODIUM. [Concomitant]
     Active Substance: ENOXAPARIN SODIUM
     Dosage: .8 ML, QD
  3. PAZOPANIB [Concomitant]
     Active Substance: PAZOPANIB
     Dates: start: 20160818, end: 20170302
  4. AFINITOR [Concomitant]
     Active Substance: EVEROLIMUS
     Dates: start: 20170317, end: 20170721
  5. NEXAVAR [Suspect]
     Active Substance: SORAFENIB
     Indication: RENAL CANCER
     Dosage: 2X400 MG/ DAY
     Route: 048
     Dates: start: 20170916, end: 20170927

REACTIONS (5)
  - Retinal artery occlusion [Unknown]
  - Decreased appetite [Unknown]
  - Weight decreased [Unknown]
  - Aphonia [Unknown]
  - Asthenia [Unknown]

NARRATIVE: CASE EVENT DATE: 20170926
